FAERS Safety Report 6223718-7 (Version None)
Quarter: 2009Q2

REPORT INFORMATION
  Report Type: 
  Country: None (occurrence: None)
  Receive Date: 20090611
  Receipt Date: 20090306
  Transmission Date: 20091009
  Serious: No
  Sender: FDA-Public Use
  Company Number: US-ABBOTT-08P-163-0492805-00

PATIENT
  Sex: Male
  Weight: 95.34 kg

DRUGS (8)
  1. HUMIRA [Suspect]
     Indication: RHEUMATOID ARTHRITIS
  2. PROTONIX [Concomitant]
     Indication: DRUG USE FOR UNKNOWN INDICATION
  3. CLARITIN [Concomitant]
     Indication: ASTHMA
  4. ADVAIR HFA [Concomitant]
     Indication: DRUG USE FOR UNKNOWN INDICATION
  5. ALBUTEROL [Concomitant]
     Indication: DRUG USE FOR UNKNOWN INDICATION
     Dosage: PRN
  6. NASONEX [Concomitant]
     Indication: DRUG USE FOR UNKNOWN INDICATION
  7. AMITRIPTLINE HYDROCHLORIDE TAB [Concomitant]
     Indication: INSOMNIA
  8. AMITRIPTLINE HYDROCHLORIDE TAB [Concomitant]
     Indication: COUGH

REACTIONS (1)
  - PYREXIA [None]
